FAERS Safety Report 12317130 (Version 1)
Quarter: 2016Q2

REPORT INFORMATION
  Report Type: Spontaneous
  Country: SE (occurrence: SE)
  Receive Date: 20160429
  Receipt Date: 20160429
  Transmission Date: 20160815
  Serious: Yes (Other)
  Sender: FDA-Public Use
  Company Number: SE-ASTRAZENECA-2016SE45971

PATIENT
  Age: 80 Year
  Sex: Female

DRUGS (8)
  1. SELOKENZOC [Concomitant]
     Active Substance: METOPROLOL SUCCINATE
  2. AMLODIPINE [Concomitant]
     Active Substance: AMLODIPINE BESYLATE
  3. CLOPIDOGREL [Concomitant]
     Active Substance: CLOPIDOGREL BISULFATE
  4. LEVAXIN [Concomitant]
     Active Substance: LEVOTHYROXINE SODIUM
  5. CRESTOR [Suspect]
     Active Substance: ROSUVASTATIN CALCIUM
     Route: 048
     Dates: end: 20160120
  6. STILNOCT [Concomitant]
     Active Substance: ZOLPIDEM TARTRATE
  7. TROMBYL [Concomitant]
     Active Substance: ASPIRIN
  8. EZETROL [Concomitant]
     Active Substance: EZETIMIBE

REACTIONS (1)
  - Small fibre neuropathy [Not Recovered/Not Resolved]

NARRATIVE: CASE EVENT DATE: 2015
